FAERS Safety Report 6328806-2 (Version None)
Quarter: 2009Q3

REPORT INFORMATION
  Report Type: 
  Country: None (occurrence: None)
  Receive Date: 20090826
  Receipt Date: 20090820
  Transmission Date: 20100115
  Serious: Yes (Other)
  Sender: FDA-Public Use
  Company Number: CA-AMGEN-US361102

PATIENT
  Sex: Male

DRUGS (2)
  1. ARANESP [Suspect]
     Indication: DRUG USE FOR UNKNOWN INDICATION
     Route: 042
  2. EXJADE [Suspect]
     Route: 048

REACTIONS (3)
  - ASCITES [None]
  - PORTAL HYPERTENSION [None]
  - SPLENOMEGALY [None]
